FAERS Safety Report 16089728 (Version 1)
Quarter: 2019Q1

REPORT INFORMATION
  Report Type: Spontaneous
  Country: ES (occurrence: ES)
  Receive Date: 20190319
  Receipt Date: 20190319
  Transmission Date: 20190418
  Serious: Yes (Other)
  Sender: FDA-Public Use
  Company Number: ES-009507513-1903ESP004296

PATIENT
  Age: 89 Year
  Sex: Male
  Weight: 80 kg

DRUGS (3)
  1. SINEMET PLUS RETARD 25/100 MG COMPRIMIDOS DE LIBERACI?N RETARDADA [Suspect]
     Active Substance: CARBIDOPA\LEVODOPA
     Indication: PARKINSON^S DISEASE
     Dosage: 0.5 DOSAGE FORM, Q12H
     Route: 048
     Dates: start: 20190218, end: 20190222
  2. PAROXETINE. [Suspect]
     Active Substance: PAROXETINE
     Dosage: 20 MILLIGRAM, QD
     Route: 048
     Dates: start: 20190218, end: 20190222
  3. SINEMET PLUS 25/100 MG COMPRIMIDOS [Suspect]
     Active Substance: CARBIDOPA\LEVODOPA
     Indication: PARKINSON^S DISEASE
     Dosage: 25 MILLIGRAM, Q6H
     Route: 048
     Dates: start: 20190218, end: 20190222

REACTIONS (3)
  - Walking disability [Recovering/Resolving]
  - Pain in extremity [Recovering/Resolving]
  - Fatigue [Recovering/Resolving]

NARRATIVE: CASE EVENT DATE: 20190218
